FAERS Safety Report 9240640 (Version 1)
Quarter: 2013Q1

REPORT INFORMATION
  Report Type: Spontaneous
  Country: US (occurrence: None)
  Receive Date: 20121120
  Receipt Date: 20121120
  Transmission Date: 20140127
  Serious: No
  Sender: FDA-Public Use
  Company Number: 1000038151

PATIENT
  Age: 33 Year
  Sex: Female

DRUGS (7)
  1. VIIBRYD (VILAZODONE) [Suspect]
     Indication: DEPRESSION
     Dates: start: 20120823
  2. OMEPRAZOLE [Concomitant]
  3. VISTARIL (HYDROXYZINE) [Concomitant]
  4. DICYCLOMINE [Concomitant]
  5. DEPAKOTE (VALPROATE SEMISODIUM) [Concomitant]
  6. ADDERALL (DEXTROAMPHETAMINE AMPHETAMINE) [Concomitant]
  7. HYDROCODONE (HYDROCODONE) [Concomitant]

REACTIONS (1)
  - Dizziness [None]
